FAERS Safety Report 24644327 (Version 9)
Quarter: 2025Q3

REPORT INFORMATION
  Report Type: Report from Study
  Country: US (occurrence: US)
  Receive Date: 20241120
  Receipt Date: 20250919
  Transmission Date: 20251021
  Serious: Yes (Life-Threatening, Hospitalization, Other)
  Sender: ABBVIE
  Company Number: US-ABBVIE-6005113

PATIENT
  Age: 65 Year
  Sex: Female
  Weight: 73 kg

DRUGS (12)
  1. SKYRIZI [Suspect]
     Active Substance: RISANKIZUMAB-RZAA
     Indication: Crohn^s disease
     Dosage: STRENGTH: 360MG/2.4M?DOSE FORM: SOLUTION FOR INJECTION IN CARTRIDGE
     Route: 058
     Dates: start: 20240920, end: 20240920
  2. SKYRIZI [Suspect]
     Active Substance: RISANKIZUMAB-RZAA
     Route: 058
     Dates: start: 20240726, end: 20240726
  3. SKYRIZI [Suspect]
     Active Substance: RISANKIZUMAB-RZAA
     Dosage: STRENGTH: 360MG/2.4M?DOSE FORM: SOLUTION FOR INJECTION IN CARTRIDGE
     Route: 058
  4. SKYRIZI [Suspect]
     Active Substance: RISANKIZUMAB-RZAA
     Route: 058
     Dates: start: 20240607
  5. SKYRIZI [Suspect]
     Active Substance: RISANKIZUMAB-RZAA
     Route: 058
     Dates: start: 20240523
  6. SKYRIZI [Suspect]
     Active Substance: RISANKIZUMAB-RZAA
     Route: 058
     Dates: start: 20240503
  7. SKYRIZI [Suspect]
     Active Substance: RISANKIZUMAB-RZAA
     Route: 058
  8. SKYRIZI [Suspect]
     Active Substance: RISANKIZUMAB-RZAA
     Indication: Crohn^s disease
     Route: 042
     Dates: start: 20240426, end: 20240426
  9. SKYRIZI [Suspect]
     Active Substance: RISANKIZUMAB-RZAA
     Indication: Crohn^s disease
     Route: 042
     Dates: start: 20240531, end: 20240531
  10. SKYRIZI [Suspect]
     Active Substance: RISANKIZUMAB-RZAA
     Indication: Crohn^s disease
     Route: 042
     Dates: start: 20240628, end: 20240628
  11. VITAMIN B12 [Concomitant]
     Active Substance: CYANOCOBALAMIN
     Indication: Product used for unknown indication
     Route: 048
  12. VITAMIN B12 [Concomitant]
     Active Substance: CYANOCOBALAMIN
     Indication: Product used for unknown indication
     Route: 048

REACTIONS (30)
  - Nausea [Recovered/Resolved]
  - Large intestinal ulcer [Not Recovered/Not Resolved]
  - Muscle spasms [Not Recovered/Not Resolved]
  - Nausea [Not Recovered/Not Resolved]
  - Feeling abnormal [Not Recovered/Not Resolved]
  - Frustration tolerance decreased [Not Recovered/Not Resolved]
  - Small intestinal obstruction [Recovered/Resolved]
  - Decreased appetite [Recovering/Resolving]
  - Arthralgia [Recovered/Resolved]
  - Abdominal distension [Recovered/Resolved]
  - Gastrointestinal sounds abnormal [Recovered/Resolved]
  - Abdominal pain [Recovering/Resolving]
  - Vomiting [Recovering/Resolving]
  - Arthralgia [Not Recovered/Not Resolved]
  - Injury [Not Recovered/Not Resolved]
  - Intestinal stenosis [Recovered/Resolved]
  - General physical health deterioration [Recovering/Resolving]
  - Fatigue [Recovering/Resolving]
  - Asthenia [Recovering/Resolving]
  - Abdominal distension [Recovered/Resolved]
  - Arthralgia [Recovering/Resolving]
  - Gastrointestinal sounds abnormal [Recovering/Resolving]
  - Pain [Unknown]
  - Crohn^s disease [Unknown]
  - Intestinal resection [Unknown]
  - Malaise [Unknown]
  - Intestinal stenosis [Recovered/Resolved]
  - Fatigue [Unknown]
  - Intestinal ulcer [Recovering/Resolving]
  - Illness [Unknown]

NARRATIVE: CASE EVENT DATE: 20230601
